FAERS Safety Report 18203676 (Version 2)
Quarter: 2020Q3

REPORT INFORMATION
  Report Type: Spontaneous
  Country: JP (occurrence: JP)
  Receive Date: 20200827
  Receipt Date: 20200911
  Transmission Date: 20201103
  Serious: Yes (Hospitalization)
  Sender: FDA-Public Use
  Company Number: JP-IPSEN BIOPHARMACEUTICALS, INC.-2020-15410

PATIENT
  Age: 70 Year
  Sex: Male

DRUGS (3)
  1. 5?FU [Concomitant]
     Active Substance: FLUOROURACIL
     Indication: PANCREATIC CARCINOMA
     Dosage: 2400 MG/M2
     Route: 042
     Dates: start: 20200714
  2. LEVOFOLINATE [Concomitant]
     Active Substance: LEVOLEUCOVORIN CALCIUM
     Indication: PANCREATIC CARCINOMA
     Dosage: 200 MG/M2
     Route: 042
     Dates: start: 20200714
  3. ONIVYDE [Suspect]
     Active Substance: IRINOTECAN HYDROCHLORIDE
     Indication: PANCREATIC CARCINOMA
     Dosage: 140 MG
     Route: 042
     Dates: start: 20200714

REACTIONS (3)
  - Enterocolitis [Recovering/Resolving]
  - Diarrhoea [Recovered/Resolved]
  - Pyrexia [Recovering/Resolving]

NARRATIVE: CASE EVENT DATE: 2020
